FAERS Safety Report 4774025-0 (Version None)
Quarter: 2005Q3

REPORT INFORMATION
  Report Type: 
  Country: None (occurrence: None)
  Receive Date: 20050920
  Receipt Date: 20050909
  Transmission Date: 20060218
  Serious: Yes (Death, Hospitalization)
  Sender: FDA-Public Use
  Company Number: DE-SANOFI-SYNTHELABO-A01200506265

PATIENT
  Sex: Male
  Weight: 60 kg

DRUGS (6)
  1. CLOPIDOGREL [Suspect]
     Indication: THROMBOSIS PROPHYLAXIS
     Route: 048
     Dates: start: 20050621
  2. ANGIOMAX [Suspect]
     Indication: ACUTE CORONARY SYNDROME
     Route: 040
     Dates: start: 20050621, end: 20050621
  3. ANGIOMAX [Suspect]
     Dosage: 375 MG
     Route: 042
     Dates: start: 20050621, end: 20050621
  4. TIROFIBAN [Suspect]
     Indication: ACUTE CORONARY SYNDROME
     Route: 040
     Dates: start: 20050621, end: 20050621
  5. TIROFIBAN [Suspect]
     Dosage: 0.1 MCG/KG/MIN
     Route: 042
     Dates: start: 20050621, end: 20050622
  6. ASPIRIN [Suspect]
     Indication: THROMBOSIS PROPHYLAXIS
     Route: 048
     Dates: start: 20050621

REACTIONS (2)
  - PERICARDIAL EFFUSION [None]
  - POST PROCEDURAL HAEMORRHAGE [None]
